FAERS Safety Report 16173586 (Version 1)
Quarter: 2019Q2

REPORT INFORMATION
  Report Type: Report from Study
  Country: IT (occurrence: IT)
  Receive Date: 20190409
  Receipt Date: 20190409
  Transmission Date: 20190711
  Serious: Yes (Life-Threatening)
  Sender: FDA-Public Use
  Company Number: IT-BAYER-2019-065342

PATIENT
  Age: 44 Year
  Sex: Female

DRUGS (2)
  1. ASPIRINA [Suspect]
     Active Substance: ASPIRIN
     Indication: ARTHRALGIA
     Dosage: 1 DF, ONCE
     Route: 048
     Dates: start: 20190106, end: 20190106
  2. BRUFEN [IBUPROFEN] [Suspect]
     Active Substance: IBUPROFEN
     Indication: ARTHRALGIA
     Dosage: 1 DF, ONCE
     Route: 048
     Dates: start: 20190106, end: 20190106

REACTIONS (6)
  - Rash generalised [Recovering/Resolving]
  - Obstructive airways disorder [Recovering/Resolving]
  - Tongue oedema [Recovering/Resolving]
  - Pruritus [Recovering/Resolving]
  - Dyspnoea [Recovering/Resolving]
  - Respiratory tract oedema [Recovering/Resolving]

NARRATIVE: CASE EVENT DATE: 20190106
